FAERS Safety Report 20603965 (Version 1)
Quarter: 2022Q1

REPORT INFORMATION
  Report Type: Spontaneous
  Country: US (occurrence: US)
  Receive Date: 20220316
  Receipt Date: 20220316
  Transmission Date: 20220423
  Serious: No
  Sender: FDA-Public Use
  Company Number: US-SA-SAC20220309001806

PATIENT
  Sex: Female
  Weight: 55.692 kg

DRUGS (4)
  1. DUPIXENT [Suspect]
     Active Substance: DUPILUMAB
     Indication: Dermatitis atopic
     Dosage: 400 MG, 1X
     Route: 058
  2. DUPIXENT [Suspect]
     Active Substance: DUPILUMAB
     Dosage: 200 MG, QOW
     Route: 058
     Dates: start: 20220223
  3. NORETHINDRONE [Concomitant]
     Active Substance: NORETHINDRONE
  4. DESONIDE [Concomitant]
     Active Substance: DESONIDE

REACTIONS (3)
  - Eczema [Unknown]
  - Dry skin [Unknown]
  - Pruritus [Unknown]
